FAERS Safety Report 13328898 (Version 1)
Quarter: 2017Q1

REPORT INFORMATION
  Report Type: Spontaneous
  Country: US (occurrence: US)
  Receive Date: 20170310
  Receipt Date: 20170310
  Transmission Date: 20170428
  Serious: No
  Sender: FDA-Public Use
  Company Number: None

PATIENT
  Age: 64 Year
  Sex: Female

DRUGS (1)
  1. ENBREL [Suspect]
     Active Substance: ETANERCEPT
     Route: 058
     Dates: start: 20161114, end: 20170306

REACTIONS (3)
  - Therapy non-responder [None]
  - Arthralgia [None]
  - Arthropathy [None]

NARRATIVE: CASE EVENT DATE: 20170306
